FAERS Safety Report 11640689 (Version 1)
Quarter: 2015Q4

REPORT INFORMATION
  Report Type: Spontaneous
  Country: US (occurrence: None)
  Receive Date: 20151016
  Receipt Date: 20151016
  Transmission Date: 20160304
  Serious: Yes (Other)
  Sender: FDA-Public Use
  Company Number: None

PATIENT
  Age: 70 Year
  Sex: Male
  Weight: 73.48 kg

DRUGS (4)
  1. ASPIRIN. [Concomitant]
     Active Substance: ASPIRIN
  2. IPRATROPIUM [Concomitant]
     Active Substance: IPRATROPIUM
  3. SULFATE [Concomitant]
  4. IPRATROPIUM BROMIDE AND ALBUTEROL SULFATE [Suspect]
     Active Substance: ALBUTEROL SULFATE\IPRATROPIUM BROMIDE
     Indication: EMPHYSEMA
     Dosage: 0.5/3 MG
     Route: 055
     Dates: start: 20151004, end: 20151015

REACTIONS (2)
  - Product label issue [None]
  - Alopecia [None]

NARRATIVE: CASE EVENT DATE: 20150707
